FAERS Safety Report 9025957 (Version 1)
Quarter: 2013Q1

REPORT INFORMATION
  Report Type: Spontaneous
  Country: BR (occurrence: BR)
  Receive Date: 20130122
  Receipt Date: 20130122
  Transmission Date: 20140127
  Serious: Yes (Hospitalization, Other)
  Sender: FDA-Public Use
  Company Number: BR-ASTRAZENECA-2013SE02767

PATIENT
  Age: 954 Month
  Sex: Female
  Weight: 86 kg

DRUGS (6)
  1. ATACAND [Suspect]
     Indication: HYPERTENSION
     Route: 048
     Dates: start: 20130106
  2. ATACAND COMB [Suspect]
     Indication: HYPERTENSION
     Dosage: 16/5 MG
     Route: 048
     Dates: start: 201202, end: 20130105
  3. LASIX [Concomitant]
     Route: 048
  4. SIMVASTATIN [Concomitant]
     Route: 048
  5. SOMALGIN [Concomitant]
     Route: 048
  6. ATENSINA [Concomitant]
     Route: 048

REACTIONS (3)
  - Erysipelas [Recovered/Resolved]
  - Arthritis [Recovered/Resolved]
  - Local swelling [Not Recovered/Not Resolved]
